FAERS Safety Report 10226510 (Version 2)
Quarter: 2014Q2

REPORT INFORMATION
  Report Type: Spontaneous
  Country: US (occurrence: US)
  Receive Date: 20140609
  Receipt Date: 20140609
  Transmission Date: 20141212
  Serious: No
  Sender: FDA-Public Use
  Company Number: US-AMGEN INC.-USASP2013083910

PATIENT
  Age: 77 Year
  Sex: Male
  Weight: 59.86 kg

DRUGS (3)
  1. PROCRIT [Suspect]
     Indication: MYELODYSPLASTIC SYNDROME
     Dosage: 40000 UNIT, WEEKLY
     Route: 058
     Dates: start: 20131009
  2. LORAZEPAM [Concomitant]
     Indication: SLEEP DISORDER
     Dosage: 4 MG, QHS (FOR 40 YEARS)
  3. TAMSULOSIN [Concomitant]
     Dosage: UNK UNK, QHS (1 PILL PER NIGHT)

REACTIONS (7)
  - Pain in extremity [Not Recovered/Not Resolved]
  - Mobility decreased [Not Recovered/Not Resolved]
  - Peripheral swelling [Not Recovered/Not Resolved]
  - Joint stiffness [Not Recovered/Not Resolved]
  - Limb discomfort [Not Recovered/Not Resolved]
  - Bone pain [Not Recovered/Not Resolved]
  - Arthralgia [Not Recovered/Not Resolved]
